FAERS Safety Report 6221063-7 (Version None)
Quarter: 2009Q2

REPORT INFORMATION
  Report Type: 
  Country: None (occurrence: None)
  Receive Date: 20090610
  Receipt Date: 20090605
  Transmission Date: 20091009
  Serious: Yes (Other)
  Sender: FDA-Public Use
  Company Number: A0789810A

PATIENT
  Age: 77 Year
  Sex: Female

DRUGS (1)
  1. PROMACTA [Suspect]
     Indication: IDIOPATHIC THROMBOCYTOPENIC PURPURA
     Dosage: 75MG PER DAY
     Route: 048
     Dates: start: 20081230, end: 20090320

REACTIONS (3)
  - DRUG INEFFECTIVE [None]
  - MYELOFIBROSIS [None]
  - THROMBOCYTOPENIA [None]
